FAERS Safety Report 7014807-8 (Version None)
Quarter: 2010Q3

REPORT INFORMATION
  Report Type: 
  Country: None (occurrence: None)
  Receive Date: 20100927
  Receipt Date: 20100924
  Transmission Date: 20110219
  Serious: Yes (Death, Hospitalization, Other)
  Sender: FDA-Public Use
  Company Number: FR-CELGENEUS-056-20785-10072563

PATIENT
  Sex: Female
  Weight: 60 kg

DRUGS (1)
  1. THALIDOMIDE [Suspect]
     Indication: PRODUCT USED FOR UNKNOWN INDICATION
     Route: 048
     Dates: start: 20100430, end: 20100622

REACTIONS (5)
  - CONFUSIONAL STATE [None]
  - DISEASE PROGRESSION [None]
  - DRUG INEFFECTIVE [None]
  - LEUKAEMIA PLASMACYTIC [None]
  - NEOPLASM [None]
